FAERS Safety Report 9234314 (Version 2)
Quarter: 2013Q2

REPORT INFORMATION
  Report Type: Report from Study
  Country: IE (occurrence: IE)
  Receive Date: 20130416
  Receipt Date: 20130426
  Transmission Date: 20140414
  Serious: Yes (Hospitalization, Other)
  Sender: FDA-Public Use
  Company Number: IE-ROCHE-CID000000002386567

PATIENT
  Age: 70 Year
  Sex: Male

DRUGS (2)
  1. RANIBIZUMAB [Suspect]
     Indication: DIABETIC RETINAL OEDEMA
     Dosage: LAST DOSE PRIOR TO EVENT ON 25/SEP/2012
     Route: 050
     Dates: start: 20120214
  2. RANIBIZUMAB [Suspect]
     Route: 042
     Dates: start: 20120605, end: 20120605

REACTIONS (2)
  - Gastrointestinal carcinoma [Not Recovered/Not Resolved]
  - Platelet count decreased [Unknown]
